FAERS Safety Report 6483091-6 (Version None)
Quarter: 2009Q4

REPORT INFORMATION
  Report Type: 
  Country: None (occurrence: None)
  Receive Date: 20091209
  Receipt Date: 20090409
  Transmission Date: 20100525
  Serious: No
  Sender: FDA-Public Use
  Company Number: US-AMGEN-STX317477

PATIENT
  Sex: Female

DRUGS (9)
  1. ENBREL [Suspect]
     Indication: RHEUMATOID ARTHRITIS
     Route: 058
     Dates: start: 20001214
  2. PLAQUENIL [Concomitant]
     Route: 048
  3. SULFASALAZINE [Concomitant]
     Route: 048
  4. AMARYL [Concomitant]
     Indication: HEPATITIS C
  5. HERBAL SUPPLEMENT [Concomitant]
  6. ACCUPRIL [Concomitant]
  7. INSULIN [Concomitant]
  8. DARVON [Concomitant]
  9. ULTRAM [Concomitant]

REACTIONS (2)
  - INJECTION SITE PAIN [None]
  - RASH [None]
